FAERS Safety Report 7398933-X (Version None)
Quarter: 2011Q2

REPORT INFORMATION
  Report Type: 
  Country: None (occurrence: None)
  Receive Date: 20110407
  Receipt Date: 20110405
  Transmission Date: 20111010
  Serious: No
  Sender: FDA-Public Use
  Company Number: US-PFIZER INC-2011075558

PATIENT
  Sex: Female
  Weight: 48.98 kg

DRUGS (3)
  1. PRISTIQ [Suspect]
     Indication: ANXIETY
  2. PRISTIQ [Suspect]
     Indication: DEPRESSION
     Dosage: 50 MG, 1X/DAY
     Route: 048
  3. PRISTIQ [Suspect]
     Indication: PANIC ATTACK

REACTIONS (2)
  - DECREASED APPETITE [None]
  - WEIGHT DECREASED [None]
